FAERS Safety Report 22155606 (Version 2)
Quarter: 2023Q2

REPORT INFORMATION
  Report Type: Spontaneous
  Country: US (occurrence: None)
  Receive Date: 20230330
  Receipt Date: 20230426
  Transmission Date: 20230722
  Serious: No
  Sender: FDA-Public Use
  Company Number: 2023A056492

PATIENT

DRUGS (1)
  1. PULMICORT FLEXHALER [Suspect]
     Active Substance: BUDESONIDE
     Dosage: 180 UG, UNKNOWN
     Route: 055

REACTIONS (3)
  - Hypoacusis [Unknown]
  - Device defective [Unknown]
  - Wrong technique in device usage process [Unknown]
